FAERS Safety Report 4313273-0 (Version None)
Quarter: 2004Q1

REPORT INFORMATION
  Report Type: 
  Country: None (occurrence: None)
  Receive Date: 20040304
  Receipt Date: 20040204
  Transmission Date: 20041129
  Serious: No
  Sender: FDA-Public Use
  Company Number: 2003SE05578

PATIENT
  Age: 42 Year
  Sex: Female

DRUGS (9)
  1. SEROQUEL [Suspect]
     Indication: PERSONALITY DISORDER
     Dosage: 200 MG DAILY PO
     Route: 048
     Dates: start: 20031127, end: 20031209
  2. SEROQUEL [Suspect]
     Indication: PERSONALITY DISORDER
     Dosage: 200 MG DAILY PO
     Route: 048
     Dates: start: 20031215
  3. DEPAKENE [Concomitant]
  4. TRANXENE [Concomitant]
  5. STAURODORM [Concomitant]
  6. ZANTAC [Concomitant]
  7. ANTABUSE [Concomitant]
  8. BISOPROLOL [Concomitant]
  9. CARDIOASPIRIN [Concomitant]

REACTIONS (3)
  - BLOOD OSMOLARITY DECREASED [None]
  - HYPOCHLORAEMIA [None]
  - HYPONATRAEMIA [None]
